APPROVED DRUG PRODUCT: LIDOCAINE VISCOUS
Active Ingredient: LIDOCAINE HYDROCHLORIDE
Strength: 2%
Dosage Form/Route: SOLUTION;ORAL
Application: A088802 | Product #001 | TE Code: AT
Applicant: HIKMA PHARMACEUTICALS USA INC
Approved: Apr 26, 1985 | RLD: No | RS: No | Type: RX